FAERS Safety Report 8070033-5 (Version None)
Quarter: 2012Q1

REPORT INFORMATION
  Report Type: 
  Country: None (occurrence: None)
  Receive Date: 20120125
  Receipt Date: 20111114
  Transmission Date: 20120608
  Serious: Yes (Hospitalization, Other)
  Sender: FDA-Public Use
  Company Number: DE-ROCHE-1013645

PATIENT

DRUGS (15)
  1. SULFAMETHOXAZOLE AND TRIMETHOPRIM [Interacting]
     Indication: PRODUCT USED FOR UNKNOWN INDICATION
  2. CIPROFLOXACIN [Interacting]
     Indication: PRODUCT USED FOR UNKNOWN INDICATION
  3. CLAVULANATE POTASSIUM [Interacting]
     Indication: PRODUCT USED FOR UNKNOWN INDICATION
  4. OFLOXACIN [Interacting]
     Indication: PRODUCT USED FOR UNKNOWN INDICATION
  5. METRONIDAZOLE [Interacting]
     Indication: PRODUCT USED FOR UNKNOWN INDICATION
  6. DICLOFENAC EPOLAMINE [Interacting]
     Indication: PRODUCT USED FOR UNKNOWN INDICATION
  7. PHENPROCOUMON [Interacting]
     Indication: PRODUCT USED FOR UNKNOWN INDICATION
  8. MOXIFLOXACIN HYDROCHLORIDE [Interacting]
     Indication: PRODUCT USED FOR UNKNOWN INDICATION
  9. CLOPIDOGREL BISULFATE [Interacting]
     Indication: PRODUCT USED FOR UNKNOWN INDICATION
  10. STATICIN [Interacting]
     Indication: PRODUCT USED FOR UNKNOWN INDICATION
  11. NAPROXEN [Suspect]
     Indication: PRODUCT USED FOR UNKNOWN INDICATION
  12. CEPHALOSPORIN NOS [Interacting]
     Indication: PRODUCT USED FOR UNKNOWN INDICATION
  13. IBUPROFEN [Interacting]
     Indication: PRODUCT USED FOR UNKNOWN INDICATION
  14. KETOPROFEN [Interacting]
     Indication: PRODUCT USED FOR UNKNOWN INDICATION
  15. LEVOFLOXACIN [Interacting]
     Indication: PRODUCT USED FOR UNKNOWN INDICATION

REACTIONS (6)
  - RESPIRATORY TRACT HAEMORRHAGE [None]
  - UROGENITAL HAEMORRHAGE [None]
  - GASTROINTESTINAL HAEMORRHAGE [None]
  - DRUG INTERACTION [None]
  - CEREBRAL HAEMORRHAGE [None]
  - HAEMORRHAGE [None]
